FAERS Safety Report 12552666 (Version 1)
Quarter: 2016Q3

REPORT INFORMATION
  Report Type: Spontaneous
  Country: PA (occurrence: PA)
  Receive Date: 20160713
  Receipt Date: 20160713
  Transmission Date: 20161109
  Serious: Yes (Death, Hospitalization, Other)
  Sender: FDA-Public Use
  Company Number: PA-ABBVIE-16P-125-1672290-00

PATIENT
  Age: 92 Year
  Sex: Female

DRUGS (1)
  1. ZEMPLAR [Suspect]
     Active Substance: PARICALCITOL
     Indication: HYPERPARATHYROIDISM SECONDARY
     Dosage: ZEMPLAR WAS ADMINISTERED DURING HEMODIALYSIS
     Route: 042

REACTIONS (3)
  - Nervous system disorder [Not Recovered/Not Resolved]
  - Fall [Unknown]
  - Craniocerebral injury [Fatal]

NARRATIVE: CASE EVENT DATE: 20160621
